FAERS Safety Report 5052450-0 (Version None)
Quarter: 2006Q3

REPORT INFORMATION
  Report Type: 
  Country: None (occurrence: None)
  Receive Date: 20060717
  Receipt Date: 20060118
  Transmission Date: 20061208
  Serious: No
  Sender: FDA-Public Use
  Company Number: US-BRISTOL-MYERS SQUIBB COMPANY-13251269

PATIENT

DRUGS (1)
  1. ESTRACE [Suspect]

REACTIONS (2)
  - BREAST CYST [None]
  - BREAST DISORDER [None]
